FAERS Safety Report 7300662-5 (Version None)
Quarter: 2011Q1

REPORT INFORMATION
  Report Type: 
  Country: None (occurrence: None)
  Receive Date: 20110218
  Receipt Date: 20110214
  Transmission Date: 20110831
  Serious: Yes (Death, Hospitalization)
  Sender: FDA-Public Use
  Company Number: KR-SHIRE-SPV1-2011-00209

PATIENT
  Age: 17 Year
  Sex: Male
  Weight: 24.1 kg

DRUGS (3)
  1. ELAPRASE [Suspect]
     Indication: MUCOPOLYSACCHARIDOSIS II
     Dosage: 2 VIALS, UNKNOWN
     Route: 041
     Dates: start: 20090409, end: 20110201
  2. TULOBUTEROL [Concomitant]
     Indication: RESPIRATORY DISORDER
     Dosage: 2 MG, 1X/DAY:QD
     Route: 062
     Dates: start: 20101026, end: 20110201
  3. LEVODROPROPIZINE [Concomitant]
     Indication: ANTITUSSIVE THERAPY
     Dosage: 36 MG, 3X/DAY:TID
     Route: 048
     Dates: start: 20110125, end: 20110201

REACTIONS (2)
  - RESPIRATORY DISTRESS [None]
  - PNEUMONIA [None]
